FAERS Safety Report 12956785 (Version 2)
Quarter: 2017Q1

REPORT INFORMATION
  Report Type: Report from Study
  Country: US (occurrence: US)
  Receive Date: 20161118
  Receipt Date: 20170223
  Transmission Date: 20170428
  Serious: Yes (Other)
  Sender: FDA-Public Use
  Company Number: US-TEVA-691793USA

PATIENT
  Sex: Female

DRUGS (18)
  1. MULTIVITAMIN [Concomitant]
     Active Substance: VITAMINS
  2. OMEGA 3 [Concomitant]
     Active Substance: OMEGA-3 FATTY ACIDS
  3. NEURONTIN [Concomitant]
     Active Substance: GABAPENTIN
  4. VITAMIN D3 [Concomitant]
     Active Substance: CHOLECALCIFEROL
  5. COPAXONE [Suspect]
     Active Substance: GLATIRAMER ACETATE
     Indication: MULTIPLE SCLEROSIS
     Route: 058
     Dates: start: 19991011, end: 20140116
  6. COPAXONE [Suspect]
     Active Substance: GLATIRAMER ACETATE
     Route: 058
     Dates: start: 20140314
  7. AMPYRA [Concomitant]
     Active Substance: DALFAMPRIDINE
  8. ENABLEX [Concomitant]
     Active Substance: DARIFENACIN HYDROBROMIDE
  9. ESTRADIOL. [Concomitant]
     Active Substance: ESTRADIOL
  10. ZIOPTAN [Concomitant]
     Active Substance: TAFLUPROST
  11. BIOTIN [Concomitant]
     Active Substance: BIOTIN
  12. ALPHAGAN P [Concomitant]
     Active Substance: BRIMONIDINE TARTRATE
  13. DOCUSATE [Concomitant]
     Active Substance: DOCUSATE
  14. CITRACAL [Concomitant]
     Active Substance: CALCIUM CITRATE
  15. MYRBETRIQ [Concomitant]
     Active Substance: MIRABEGRON
  16. ISTALOL [Concomitant]
     Active Substance: TIMOLOL MALEATE
  17. PENLAC [Concomitant]
     Active Substance: CICLOPIROX
  18. COQ10 [Concomitant]
     Active Substance: UBIDECARENONE

REACTIONS (4)
  - Lipodystrophy acquired [Not Recovered/Not Resolved]
  - Secondary progressive multiple sclerosis [Unknown]
  - Multiple sclerosis [Unknown]
  - Product use issue [Unknown]

NARRATIVE: CASE EVENT DATE: 2007
